FAERS Safety Report 8810129 (Version 1)
Quarter: 2012Q4

REPORT INFORMATION
  Report Type: 
  Country: BR (occurrence: BR)
  Receive Date: 20120926
  Receipt Date: 20120926
  Transmission Date: 20130627
  Serious: Yes (Hospitalization)
  Sender: FDA-Public Use
  Company Number: BR-ASTRAZENECA-2012SE72982

PATIENT
  Age: 946 Month
  Sex: Female
  Weight: 70 kg

DRUGS (4)
  1. NEXIUM [Suspect]
     Indication: GASTRIC ULCER
     Route: 048
     Dates: start: 2011, end: 201209
  2. NEXIUM [Suspect]
     Indication: GASTRIC ULCER
     Route: 048
     Dates: start: 201209
  3. DICLOFENAC [Suspect]
     Indication: GASTRIC INFECTION
     Route: 048
     Dates: start: 201209
  4. SYNTHROID [Concomitant]
     Indication: HYPOTHYROIDISM
     Route: 048

REACTIONS (3)
  - Gastritis [Recovered/Resolved]
  - Gastric haemorrhage [Recovered/Resolved]
  - Drug dose omission [Not Recovered/Not Resolved]
